FAERS Safety Report 4518135-1 (Version None)
Quarter: 2004Q4

REPORT INFORMATION
  Report Type: 
  Country: None (occurrence: None)
  Receive Date: 20041130
  Receipt Date: 20041117
  Transmission Date: 20050328
  Serious: Yes (Other)
  Sender: FDA-Public Use
  Company Number: 2004094630

PATIENT
  Age: 58 Year
  Sex: Male
  Weight: 80.2867 kg

DRUGS (6)
  1. VIAGRA [Suspect]
     Indication: ERECTILE DYSFUNCTION
     Dosage: 50 MG (50 MG, AS NECESSARY), ORAL
     Route: 048
     Dates: start: 20010101
  2. CITRUS PARADISI FRUIT JUICE (CITRUS PARADISI FRUIT JUICE) [Suspect]
     Indication: ILL-DEFINED DISORDER
     Dosage: ORAL
     Route: 048
  3. CALCITONIN, SALMON (CALCITONIN, SALMON) [Concomitant]
  4. DICLOFENAC SODIUM [Concomitant]
  5. CYCLOBENZAPRINE (CYCLOBENZAPRINE) [Concomitant]
  6. PROPACET 100 [Concomitant]

REACTIONS (18)
  - ANGIONEUROTIC OEDEMA [None]
  - AURICULAR SWELLING [None]
  - BLOOD PRESSURE INCREASED [None]
  - DRUG HYPERSENSITIVITY [None]
  - DRUG INTERACTION [None]
  - DYSPNOEA [None]
  - FACE OEDEMA [None]
  - FACIAL PALSY [None]
  - FOOD INTERACTION [None]
  - LABORATORY TEST INTERFERENCE [None]
  - OROPHARYNGEAL SWELLING [None]
  - PARAESTHESIA [None]
  - PROSTATIC DISORDER [None]
  - PRURITUS [None]
  - RASH ERYTHEMATOUS [None]
  - SWELLING [None]
  - SWOLLEN TONGUE [None]
  - THROAT TIGHTNESS [None]
